FAERS Safety Report 22590892 (Version 5)
Quarter: 2023Q2

REPORT INFORMATION
  Report Type: Spontaneous
  Country: US (occurrence: US)
  Receive Date: 20230612
  Receipt Date: 20230626
  Transmission Date: 20230722
  Serious: No
  Sender: FDA-Public Use
  Company Number: US-BIOGEN-2023BI01209880

PATIENT
  Sex: Female

DRUGS (1)
  1. TYSABRI [Suspect]
     Active Substance: NATALIZUMAB
     Indication: Multiple sclerosis
     Route: 050
     Dates: start: 20120730

REACTIONS (7)
  - Inappropriate schedule of product administration [Unknown]
  - Dental caries [Unknown]
  - Vein rupture [Unknown]
  - Multiple sclerosis [Unknown]
  - Vein disorder [Unknown]
  - Increased tendency to bruise [Unknown]
  - Blood test abnormal [Unknown]

NARRATIVE: CASE EVENT DATE: 20220101
